FAERS Safety Report 17369465 (Version 2)
Quarter: 2020Q1

REPORT INFORMATION
  Report Type: Report from Study
  Country: KR (occurrence: KR)
  Receive Date: 20200204
  Receipt Date: 20200213
  Transmission Date: 20200409
  Serious: Yes (Death)
  Sender: FDA-Public Use
  Company Number: KR-CELLTRION INC.-2020KR017704

PATIENT

DRUGS (8)
  1. DUPHALAC EASY SYRUP [Concomitant]
     Indication: CONSTIPATION
     Dosage: 15 ML, TID
     Route: 048
     Dates: start: 20191215, end: 20200125
  2. MTX [METHOTREXATE] [Suspect]
     Active Substance: METHOTREXATE SODIUM
     Indication: CHEMOTHERAPY
     Dosage: INDUCTION CHEMOTHERAPY: 5320MG QD DAY 2.
     Route: 042
  3. LANSTON [Concomitant]
     Active Substance: LANSOPRAZOLE
     Indication: GASTRITIS PROPHYLAXIS
     Dosage: 15 MG, QD
     Route: 048
     Dates: start: 20191218, end: 20200125
  4. RITUXIMAB (UNKNOWN) [Suspect]
     Active Substance: RITUXIMAB
     Indication: DIFFUSE LARGE B-CELL LYMPHOMA
     Dosage: INDUCTION CHEMOTHERAPY: 775MG QD DAY 1
     Route: 042
     Dates: start: 20191218, end: 20191230
  5. MTX [METHOTREXATE] [Suspect]
     Active Substance: METHOTREXATE SODIUM
     Indication: DIFFUSE LARGE B-CELL LYMPHOMA
  6. SOLONDO [Concomitant]
     Active Substance: PREDNISOLONE
     Indication: DIFFUSE LARGE B-CELL LYMPHOMA
     Dosage: 30 MG, QD
     Route: 048
     Dates: start: 20191215, end: 20200125
  7. GASTER [Concomitant]
     Active Substance: FAMOTIDINE
     Indication: GASTRITIS PROPHYLAXIS
     Dosage: 20 MG, BID
     Route: 048
     Dates: start: 20191215, end: 20200125
  8. PLUNAZOL [Concomitant]
     Indication: FUNGAL INFECTION
     Dosage: 50 MG, QD
     Route: 048
     Dates: start: 20191218, end: 20200125

REACTIONS (2)
  - Pneumonitis [Fatal]
  - Overdose [Unknown]

NARRATIVE: CASE EVENT DATE: 20200103
